FAERS Safety Report 17440625 (Version 2)
Quarter: 2020Q1

REPORT INFORMATION
  Report Type: Spontaneous
  Country: FR (occurrence: FR)
  Receive Date: 20200220
  Receipt Date: 20200305
  Transmission Date: 20200409
  Serious: Yes (Other)
  Sender: FDA-Public Use
  Company Number: FR-PFIZER INC-2020068766

PATIENT
  Sex: Male

DRUGS (2)
  1. SOLU-MEDROL [Suspect]
     Active Substance: METHYLPREDNISOLONE SODIUM SUCCINATE
     Dosage: 1 DF, MONTHLY (1 BOLUS PER MONTH)
     Route: 040
     Dates: start: 201904
  2. SOLU-MEDROL [Suspect]
     Active Substance: METHYLPREDNISOLONE SODIUM SUCCINATE
     Indication: PRIMARY PROGRESSIVE MULTIPLE SCLEROSIS
     Dosage: 3 MG (THREE BOLUS 1 MG)
     Route: 040
     Dates: start: 201807, end: 201807

REACTIONS (2)
  - Bone loss [Unknown]
  - Bone disorder [Unknown]
